FAERS Safety Report 13511015 (Version 1)
Quarter: 2017Q2

REPORT INFORMATION
  Report Type: Report from Study
  Country: US (occurrence: BR)
  Receive Date: 20170503
  Receipt Date: 20170503
  Transmission Date: 20170830
  Serious: Yes (Death)
  Sender: FDA-Public Use
  Company Number: US-SUNOVION-2017SUN001868

PATIENT
  Age: 89 Year
  Sex: Male

DRUGS (2)
  1. GLYCOPYRROLATE. [Suspect]
     Active Substance: GLYCOPYRROLATE
     Indication: EMPHYSEMA
     Dosage: 50 UG, QD
     Route: 065
  2. INDACATEROL [Suspect]
     Active Substance: INDACATEROL
     Indication: EMPHYSEMA
     Dosage: 150 UG, QD
     Route: 065

REACTIONS (1)
  - Hypoxia [Fatal]
